FAERS Safety Report 5929497-2 (Version None)
Quarter: 2008Q4

REPORT INFORMATION
  Report Type: 
  Country: None (occurrence: None)
  Receive Date: 20081024
  Receipt Date: 20081021
  Transmission Date: 20090506
  Serious: Yes (Death)
  Sender: FDA-Public Use
  Company Number: A0752787A

PATIENT
  Age: 23 Year
  Sex: Male
  Weight: 101.4 kg

DRUGS (3)
  1. BUPROPION HYDROCHLORIDE [Suspect]
     Indication: DEPRESSION
     Dosage: 150MG TWICE PER DAY
     Route: 048
     Dates: start: 20070601, end: 20080220
  2. ELAVIL [Concomitant]
  3. INSULIN [Concomitant]

REACTIONS (2)
  - DEATH [None]
  - DRUG TOXICITY [None]
